FAERS Safety Report 9203072 (Version 2)
Quarter: 2013Q1

REPORT INFORMATION
  Report Type: Spontaneous
  Country: GB (occurrence: None)
  Receive Date: 20130328
  Receipt Date: 20130328
  Transmission Date: 20140127
  Serious: Yes (Hospitalization, Disabling)
  Sender: FDA-Public Use
  Company Number: 2013MZ000017

PATIENT
  Age: 38 Year
  Sex: Female

DRUGS (1)
  1. XEDOMIN [Suspect]
     Indication: HYPERTONIC BLADDER
     Route: 043
     Dates: start: 201207, end: 201207

REACTIONS (3)
  - Myelitis transverse [None]
  - Hypoaesthesia [None]
  - Muscular weakness [None]
